FAERS Safety Report 13090473 (Version 2)
Quarter: 2017Q1

REPORT INFORMATION
  Report Type: Report from Study
  Country: US (occurrence: US)
  Receive Date: 20170105
  Receipt Date: 20170120
  Transmission Date: 20170428
  Serious: Yes (Death)
  Sender: FDA-Public Use
  Company Number: US-ACTELION-A-NJ2016-138705

PATIENT
  Age: 41 Year
  Sex: Female

DRUGS (6)
  1. REVATIO [Concomitant]
     Active Substance: SILDENAFIL CITRATE
  2. TRACLEER [Suspect]
     Active Substance: BOSENTAN
     Indication: PULMONARY HYPERTENSION
     Dosage: 62.5 MG, BID
     Route: 048
     Dates: start: 20060209, end: 20161210
  3. MORPHINE [Concomitant]
     Active Substance: MORPHINE
  4. TRACLEER [Suspect]
     Active Substance: BOSENTAN
     Dosage: 125 MG-AM/187.5 MG-PM, BID
     Route: 048
  5. OPSUMIT [Suspect]
     Active Substance: MACITENTAN
     Indication: PULMONARY HYPERTENSION
     Dosage: 10 MG, UNK
     Route: 048
  6. OXYGEN. [Concomitant]
     Active Substance: OXYGEN
     Dosage: 5 L, UNK
     Route: 055

REACTIONS (7)
  - Condition aggravated [Unknown]
  - Abdominal pain [Unknown]
  - Ascites [Unknown]
  - Feeling abnormal [Unknown]
  - Chest pain [Unknown]
  - Weight decreased [Unknown]
  - Death [Fatal]

NARRATIVE: CASE EVENT DATE: 20161210
